FAERS Safety Report 12657752 (Version 1)
Quarter: 2016Q3

REPORT INFORMATION
  Report Type: Spontaneous
  Country: GB (occurrence: GB)
  Receive Date: 20160816
  Receipt Date: 20160816
  Transmission Date: 20161109
  Serious: Yes (Other)
  Sender: FDA-Public Use
  Company Number: PHHY2016GB109677

PATIENT
  Age: 48 Year
  Sex: Female

DRUGS (1)
  1. RAMIPRIL. [Suspect]
     Active Substance: RAMIPRIL
     Indication: HYPERTENSION
     Route: 065
     Dates: start: 2015

REACTIONS (6)
  - Psychotic disorder [Recovered/Resolved]
  - Mental disorder [Recovered/Resolved]
  - Malaise [Recovered/Resolved]
  - Weight increased [Recovered/Resolved]
  - Dizziness [Recovered/Resolved]
  - Depression [Recovered/Resolved]
